FAERS Safety Report 5213108-8 (Version None)
Quarter: 2007Q1

REPORT INFORMATION
  Report Type: 
  Country: None (occurrence: None)
  Receive Date: 20070118
  Receipt Date: 20070118
  Transmission Date: 20070707
  Serious: Yes (Hospitalization)
  Sender: FDA-Public Use
  Company Number: None

PATIENT
  Age: 58 Year
  Sex: Male

DRUGS (6)
  1. NAFCILLIN SODIUM [Suspect]
     Indication: PYOTHORAX
     Dosage: 2 GM IV EVERY 4 HR
     Route: 042
     Dates: start: 20061110, end: 20061118
  2. TYLENOL [Concomitant]
  3. MORPHINE [Concomitant]
  4. AVAPRO [Concomitant]
  5. VYTORIN [Concomitant]
  6. CLINDAMYCIN [Concomitant]

REACTIONS (2)
  - NEPHRITIS INTERSTITIAL [None]
  - RASH [None]
